FAERS Safety Report 10667696 (Version 1)
Quarter: 2014Q4

REPORT INFORMATION
  Report Type: Spontaneous
  Country: GB (occurrence: None)
  Receive Date: 20141218
  Receipt Date: 20141218
  Transmission Date: 20150529
  Serious: Yes (Hospitalization)
  Sender: FDA-Public Use
  Company Number: 201412IM007933

PATIENT
  Age: 66 Year

DRUGS (1)
  1. ESBRIET [Suspect]
     Active Substance: PIRFENIDONE
     Indication: PRODUCT USED FOR UNKNOWN INDICATION
     Route: 048
     Dates: start: 2014

REACTIONS (4)
  - Lower respiratory tract infection [None]
  - Monoclonal immunoglobulin present [None]
  - Neutropenia [None]
  - Liver function test abnormal [None]

NARRATIVE: CASE EVENT DATE: 2014
